FAERS Safety Report 21318173 (Version 1)
Quarter: 2022Q3

REPORT INFORMATION
  Report Type: Spontaneous
  Country: US (occurrence: US)
  Receive Date: 20220911
  Receipt Date: 20220911
  Transmission Date: 20221026
  Serious: No
  Sender: FDA-Public Use
  Company Number: US-SA-SAC20220829001613

PATIENT
  Age: 31 Year
  Sex: Female
  Weight: 52 kg

DRUGS (16)
  1. DUPIXENT [Suspect]
     Active Substance: DUPILUMAB
     Indication: Dermatitis atopic
     Dosage: 300 MG, QOW
     Route: 058
     Dates: start: 2020
  2. CYANOCOBALAMIN [Concomitant]
     Active Substance: CYANOCOBALAMIN
  3. VITAMIN D NOS [Concomitant]
     Active Substance: VITAMIN D NOS
  4. MIRENA [Concomitant]
     Active Substance: LEVONORGESTREL
  5. DIFFERIN [Concomitant]
     Active Substance: ADAPALENE
  6. BETAMETHASONE ACETATE [Concomitant]
     Active Substance: BETAMETHASONE ACETATE
  7. CLOBETASOL [Concomitant]
     Active Substance: CLOBETASOL
  8. EUCRISA [Concomitant]
     Active Substance: CRISABOROLE
  9. SPIRONOLACTONE [Concomitant]
     Active Substance: SPIRONOLACTONE
  10. IBUPROFEN [Concomitant]
     Active Substance: IBUPROFEN
  11. CITALOPRAM [Concomitant]
     Active Substance: CITALOPRAM HYDROBROMIDE
  12. PRIMIDONE [Concomitant]
     Active Substance: PRIMIDONE
  13. BACLOFEN [Concomitant]
     Active Substance: BACLOFEN
  14. PROBIOTICS NOS [Concomitant]
     Active Substance: PROBIOTICS NOS
  15. OSTEO BI-FLEX [CHONDROITIN SULFATE;GLUCOSAMINE HYDROCHLORIDE] [Concomitant]
  16. VITAMIN C [Concomitant]
     Active Substance: ASCORBIC ACID

REACTIONS (1)
  - Surgery [Unknown]
